FAERS Safety Report 10765141 (Version 1)
Quarter: 2015Q1

REPORT INFORMATION
  Report Type: Spontaneous
  Country: US (occurrence: US)
  Receive Date: 20150205
  Receipt Date: 20150205
  Transmission Date: 20150721
  Serious: Yes (Other)
  Sender: FDA-Public Use
  Company Number: US-CIPLA LTD.-2015US00835

PATIENT

DRUGS (4)
  1. VELIPARIB [Suspect]
     Active Substance: VELIPARIB
     Indication: CERVIX CARCINOMA
     Dosage: 10 MG, BID ON DAYS 1 TO 5 OF CYCLE
  2. FILGRASTIM [Concomitant]
     Active Substance: FILGRASTIM
     Dosage: 24 TO 72 HOURS AFTER THE LAST DOSE OF TOPOTECAN AND VELIPARIB
     Route: 058
  3. PEGFILGRASTIM [Concomitant]
     Active Substance: PEGFILGRASTIM
     Dosage: 6 MG, 1 DOSE PER TREATMENT CYCLE, 24 TO 72 HOURS AFTER THE LAST DOSE OF TOPOTECAN
     Route: 058
  4. TOPOTECAN [Suspect]
     Active Substance: TOPOTECAN\TOPOTECAN HYDROCHLORIDE
     Indication: CERVIX CARCINOMA
     Dosage: 0.6 MG/M2 ONCE DAILY ON DAYS 1 TO 5
     Route: 042

REACTIONS (1)
  - Cardiac disorder [Unknown]
